FAERS Safety Report 19458524 (Version 2)
Quarter: 2021Q3

REPORT INFORMATION
  Report Type: Report from Study
  Country: JP (occurrence: JP)
  Receive Date: 20210624
  Receipt Date: 20210921
  Transmission Date: 20211014
  Serious: Yes (Other)
  Sender: FDA-Public Use
  Company Number: JP-MYLANLABS-2021M1036856

PATIENT
  Age: 64 Year
  Sex: Female

DRUGS (4)
  1. VORICONAZOLE. [Interacting]
     Active Substance: VORICONAZOLE
     Indication: PRODUCT USED FOR UNKNOWN INDICATION
     Route: 065
  2. TACROLIMUS. [Suspect]
     Active Substance: TACROLIMUS
     Indication: PROPHYLAXIS AGAINST GRAFT VERSUS HOST DISEASE
     Route: 065
  3. PONATINIB [Interacting]
     Active Substance: PONATINIB
     Indication: PHILADELPHIA POSITIVE ACUTE LYMPHOCYTIC LEUKAEMIA
     Dosage: 30 MILLIGRAM, QD
     Route: 065
  4. PONATINIB [Interacting]
     Active Substance: PONATINIB
     Indication: PROPHYLACTIC CHEMOTHERAPY
     Dosage: 15 MILLIGRAM, QD
     Route: 065

REACTIONS (3)
  - Hyperkalaemia [Unknown]
  - Drug interaction [Unknown]
  - Anaemia [Unknown]
